FAERS Safety Report 5473899-8 (Version None)
Quarter: 2007Q3

REPORT INFORMATION
  Report Type: 
  Country: None (occurrence: None)
  Receive Date: 20070831
  Receipt Date: 20070621
  Transmission Date: 20080115
  Serious: No
  Sender: FDA-Public Use
  Company Number: 241256

PATIENT
  Age: 63 Year
  Sex: Male

DRUGS (2)
  1. LUCENTIS [Suspect]
     Indication: MACULAR DEGENERATION
     Dosage: 0.5 MG, INTRAVITREAL
     Dates: start: 20070417
  2. PROVENTIL HFA (ALBUTEROL/ALBUTEROL SULFATE) [Concomitant]

REACTIONS (2)
  - EYE PAIN [None]
  - HEADACHE [None]
